FAERS Safety Report 25259264 (Version 1)
Quarter: 2025Q2

REPORT INFORMATION
  Report Type: Spontaneous
  Country: CN (occurrence: CN)
  Receive Date: 20250501
  Receipt Date: 20250501
  Transmission Date: 20250716
  Serious: Yes (Other)
  Sender: ROCHE
  Company Number: CN-ROCHE-10000269941

PATIENT
  Age: 83 Year
  Sex: Female

DRUGS (1)
  1. ALECTINIB HYDROCHLORIDE [Suspect]
     Active Substance: ALECTINIB HYDROCHLORIDE
     Indication: Lung carcinoma cell type unspecified recurrent
     Route: 048
     Dates: end: 20250411

REACTIONS (2)
  - Cardiac failure [Recovering/Resolving]
  - Oedema peripheral [Unknown]

NARRATIVE: CASE EVENT DATE: 20250414
